FAERS Safety Report 20189252 (Version 1)
Quarter: 2021Q4

REPORT INFORMATION
  Report Type: Spontaneous
  Country: US (occurrence: None)
  Receive Date: 20211215
  Receipt Date: 20211215
  Transmission Date: 20220304
  Serious: Yes (Other)
  Sender: FDA-Public Use
  Company Number: None

PATIENT
  Age: 46 Year
  Sex: Female
  Weight: 160.65 kg

DRUGS (7)
  1. RISPERIDONE [Suspect]
     Active Substance: RISPERIDONE
     Indication: Manic symptom
     Dosage: FREQUENCY : AT BEDTIME;?
     Route: 048
  2. RISPERIDONE [Suspect]
     Active Substance: RISPERIDONE
     Indication: Psychotic disorder
  3. RISPERDAL CONSTA [Suspect]
     Active Substance: RISPERIDONE
     Indication: Manic symptom
     Dosage: OTHER FREQUENCY : EVERY 2 WEEKS;?
     Route: 030
  4. RISPERDAL CONSTA [Suspect]
     Active Substance: RISPERIDONE
     Indication: Psychotic disorder
  5. ZIPRASIDONE [Concomitant]
     Active Substance: ZIPRASIDONE
  6. CLOZAPINE [Concomitant]
     Active Substance: CLOZAPINE
  7. LORAZEPAM [Concomitant]
     Active Substance: LORAZEPAM

REACTIONS (6)
  - Fatigue [None]
  - Drug level increased [None]
  - Agitation [None]
  - Manic symptom [None]
  - Somnolence [None]
  - Psychotic disorder [None]

NARRATIVE: CASE EVENT DATE: 20210928
